FAERS Safety Report 19603382 (Version 6)
Quarter: 2022Q1

REPORT INFORMATION
  Report Type: Report from Study
  Country: BR (occurrence: BR)
  Receive Date: 20210723
  Receipt Date: 20220113
  Transmission Date: 20220423
  Serious: Yes (Death, Hospitalization)
  Sender: FDA-Public Use
  Company Number: BR-002147023-NVSC2021BR165164

PATIENT

DRUGS (2)
  1. RUXOLITINIB [Suspect]
     Active Substance: RUXOLITINIB
     Indication: Myelofibrosis
     Dosage: 5 MG, QD
     Route: 048
     Dates: start: 20170628
  2. RUXOLITINIB [Suspect]
     Active Substance: RUXOLITINIB
     Dosage: 5 MG, 8QD (8 TIMES A DAY, STARTED 3 YEARS AGO)
     Route: 048

REACTIONS (13)
  - Acute myeloid leukaemia [Fatal]
  - Hypertension [Fatal]
  - Wound [Recovered/Resolved]
  - Peripheral vascular disorder [Not Recovered/Not Resolved]
  - Diabetes mellitus [Fatal]
  - Haematocrit decreased [Unknown]
  - Cellulitis [Not Recovered/Not Resolved]
  - Extra dose administered [Unknown]
  - Inappropriate schedule of product administration [Unknown]
  - Platelet count decreased [Unknown]
  - Myelofibrosis [Fatal]
  - Sepsis [Fatal]
  - Septic shock [Fatal]

NARRATIVE: CASE EVENT DATE: 20210101
